FAERS Safety Report 10021880 (Version 2)
Quarter: 2014Q3

REPORT INFORMATION
  Report Type: Report from Study
  Country: IL (occurrence: IL)
  Receive Date: 20140319
  Receipt Date: 20140723
  Transmission Date: 20150326
  Serious: Yes (Other)
  Sender: FDA-Public Use
  Company Number: IL-009507513-1403ISR007461

PATIENT
  Age: 61 Year
  Sex: Male
  Weight: 75 kg

DRUGS (8)
  1. LOSEC (OMEPRAZOLE) [Concomitant]
     Dosage: TOTAL DAILY DOSE 20MG
     Route: 048
     Dates: start: 20110314
  2. ASPIRIN. [Concomitant]
     Active Substance: ASPIRIN
     Dosage: TOAL DAILY DOSE 100MG
     Route: 048
     Dates: start: 20081130
  3. VASODIP [Concomitant]
     Dosage: TOTAL DAILY DOSE 10MG
     Route: 048
     Dates: start: 20121123
  4. LIPITOR [Concomitant]
     Active Substance: ATORVASTATIN CALCIUM
     Dosage: TOTAL DAILY DOSE 10MG
     Route: 048
     Dates: start: 20130205
  5. LEVEMIR [Concomitant]
     Active Substance: INSULIN DETEMIR
     Dosage: UNK, PRN
     Route: 058
     Dates: start: 20120110
  6. ENALAPRIL MALEATE. [Concomitant]
     Active Substance: ENALAPRIL MALEATE
     Dosage: TOTAL DAILY DOSE 10MG
     Route: 048
     Dates: start: 20120110
  7. SIMVASTATIN. [Suspect]
     Active Substance: SIMVASTATIN
     Indication: ACUTE CORONARY SYNDROME
     Dosage: 40 MG, QD
     Route: 048
     Dates: start: 20081202
  8. NOVO-NORM [Concomitant]
     Active Substance: REPAGLINIDE
     Dosage: TOTAL DAILY DOSE 1MG
     Route: 048
     Dates: start: 20120110

REACTIONS (1)
  - Adenocarcinoma gastric [Not Recovered/Not Resolved]

NARRATIVE: CASE EVENT DATE: 20130309
